FAERS Safety Report 9277131 (Version 1)
Quarter: 2013Q2

REPORT INFORMATION
  Report Type: Spontaneous
  Country: US (occurrence: US)
  Receive Date: 20130507
  Receipt Date: 20130507
  Transmission Date: 20140414
  Serious: Yes (Death, Hospitalization)
  Sender: FDA-Public Use
  Company Number: US-ROCHE-1221451

PATIENT
  Age: 61 Year
  Sex: Male

DRUGS (2)
  1. ACTILYSE [Suspect]
     Indication: ACUTE MYOCARDIAL INFARCTION
     Route: 042
  2. DOPAMINE [Concomitant]
     Indication: HYPOTENSION

REACTIONS (4)
  - Aortic valve disease [Fatal]
  - Hypotension [Fatal]
  - Cardiac tamponade [Fatal]
  - Vascular occlusion [Fatal]
